FAERS Safety Report 20294607 (Version 1)
Quarter: 2022Q1

REPORT INFORMATION
  Report Type: Report from Study
  Country: US (occurrence: US)
  Receive Date: 20220104
  Receipt Date: 20220104
  Transmission Date: 20220423
  Serious: Yes (Life-Threatening, Hospitalization, Other)
  Sender: FDA-Public Use
  Company Number: US-BRISTOL-MYERS SQUIBB COMPANY-BMS-2022-000316

PATIENT
  Age: 62 Year
  Sex: Female
  Weight: 71.6 kg

DRUGS (1)
  1. NIVOLUMAB [Suspect]
     Active Substance: NIVOLUMAB
     Indication: Tongue neoplasm malignant stage unspecified
     Dosage: 480 MILLIGRAM, Q4WK
     Route: 042
     Dates: start: 20210818

REACTIONS (3)
  - Encephalopathy [Unknown]
  - Urinary tract infection [Unknown]
  - Myocardial infarction [Unknown]

NARRATIVE: CASE EVENT DATE: 20220101
